FAERS Safety Report 4442174-2 (Version None)
Quarter: 2004Q3

REPORT INFORMATION
  Report Type: 
  Country: None (occurrence: None)
  Receive Date: 20040903
  Receipt Date: 20040722
  Transmission Date: 20050211
  Serious: Yes (Other)
  Sender: FDA-Public Use
  Company Number: 2004UW15499

PATIENT
  Age: 65 Year
  Sex: Female
  Weight: 58.9676 kg

DRUGS (11)
  1. CRESTOR [Suspect]
     Indication: HYPERCHOLESTEROLAEMIA
     Dosage: 20 MG PO
     Route: 048
     Dates: start: 20040401
  2. LANOXIN [Concomitant]
  3. ZOLOFT [Concomitant]
  4. TRICOR [Concomitant]
  5. COUMADIN [Concomitant]
  6. CELEBREX [Concomitant]
  7. DIOVAN [Concomitant]
  8. FISH OIL [Concomitant]
  9. M.V.I. [Concomitant]
  10. CALCIUM [Concomitant]
  11. ASPIRIN [Concomitant]

REACTIONS (2)
  - FEELING HOT [None]
  - HYPERHIDROSIS [None]
